FAERS Safety Report 4664451-2 (Version None)
Quarter: 2005Q2

REPORT INFORMATION
  Report Type: 
  Country: None (occurrence: None)
  Receive Date: 20050518
  Receipt Date: 20050505
  Transmission Date: 20051028
  Serious: Yes (Other)
  Sender: FDA-Public Use
  Company Number: US-JNJFOC-20050501737

PATIENT
  Age: 82 Year
  Sex: Male

DRUGS (2)
  1. RISPERDAL [Suspect]
     Route: 049
     Dates: start: 20050401, end: 20050422
  2. GLIPIZIDE [Concomitant]
     Route: 049

REACTIONS (2)
  - GAIT DISTURBANCE [None]
  - PARALYSIS [None]
